FAERS Safety Report 4436069-8 (Version None)
Quarter: 2004Q3

REPORT INFORMATION
  Report Type: 
  Country: None (occurrence: None)
  Receive Date: 20040726
  Receipt Date: 20040428
  Transmission Date: 20050211
  Serious: No
  Sender: FDA-Public Use
  Company Number: USA040466200

PATIENT
  Age: 62 Year
  Sex: Female

DRUGS (8)
  1. FORTEO [Suspect]
     Indication: OSTEOPOROSIS
     Dates: start: 20031201
  2. LASIX [Concomitant]
  3. POTASSIUM [Concomitant]
  4. TOPROL-XL [Concomitant]
  5. XANAX [Concomitant]
  6. FLUOXETINE [Concomitant]
  7. PREVACID [Concomitant]
  8. DONNATAL [Concomitant]

REACTIONS (8)
  - BLOOD ALKALINE PHOSPHATASE INCREASED [None]
  - BLOOD GLUCOSE INCREASED [None]
  - COLD SWEAT [None]
  - FEELING ABNORMAL [None]
  - HEADACHE [None]
  - INFLUENZA LIKE ILLNESS [None]
  - PYREXIA [None]
  - WHITE BLOOD CELL COUNT DECREASED [None]
